FAERS Safety Report 9843665 (Version 1)
Quarter: 2013Q4

REPORT INFORMATION
  Report Type: Spontaneous
  Country: US (occurrence: None)
  Receive Date: 20131223
  Receipt Date: 20131223
  Transmission Date: 20140711
  Serious: Yes (Other)
  Sender: FDA-Public Use
  Company Number: 220251LEO

PATIENT
  Age: 81 Year
  Sex: Male

DRUGS (3)
  1. PICATO [Suspect]
     Indication: ACTINIC KERATOSIS
     Dates: start: 20130118, end: 20130120
  2. VITAMINS FOR BONES (RICH IN VIT K) (MULTIVITAMIN/01229101/) [Concomitant]
  3. ANDROGEN DEPENDENT THERAPY INJECTION (ANGROGENS) [Concomitant]

REACTIONS (2)
  - Application site swelling [None]
  - Application site dryness [None]
